FAERS Safety Report 24425270 (Version 2)
Quarter: 2024Q4

REPORT INFORMATION
  Report Type: Spontaneous
  Country: IL (occurrence: IL)
  Receive Date: 20241011
  Receipt Date: 20241011
  Transmission Date: 20250114
  Serious: Yes (Death, Hospitalization, Other)
  Sender: ASTELLAS
  Company Number: IL-ASTELLAS-2024US021117

PATIENT
  Age: 68 Year
  Sex: Female

DRUGS (4)
  1. PADCEV [Suspect]
     Active Substance: ENFORTUMAB VEDOTIN-EJFV
     Indication: Metastatic carcinoma of the bladder
     Dosage: AFTER COMPLETION OF THIRD DOSE (FIRST CYCLE) TREATMENT WITH EV WAS STOPPED FOR A WEEK
     Route: 065
     Dates: start: 20240624
  2. PADCEV [Suspect]
     Active Substance: ENFORTUMAB VEDOTIN-EJFV
     Indication: Transitional cell carcinoma
     Route: 065
  3. LANTON [Concomitant]
     Indication: Product used for unknown indication
     Route: 065
  4. METFORMIN [Concomitant]
     Active Substance: METFORMIN HYDROCHLORIDE
     Indication: Product used for unknown indication
     Route: 065

REACTIONS (15)
  - Cardiac arrest [Fatal]
  - Peripheral ischaemia [Fatal]
  - Blood glucose increased [Unknown]
  - Multiple organ dysfunction syndrome [Unknown]
  - Dermatitis allergic [Recovered/Resolved]
  - Condition aggravated [Recovered/Resolved]
  - Aortic occlusion [Unknown]
  - Rhabdomyolysis [Unknown]
  - Diabetic ketoacidosis [Unknown]
  - Renal artery stenosis [Unknown]
  - Bladder necrosis [Unknown]
  - Shock [Unknown]
  - Stag horn calculus [Unknown]
  - Nephrolithiasis [Unknown]
  - Asthenia [Unknown]

NARRATIVE: CASE EVENT DATE: 20240901
